FAERS Safety Report 4755384-1 (Version None)
Quarter: 2005Q3

REPORT INFORMATION
  Report Type: 
  Country: None (occurrence: None)
  Receive Date: 20050826
  Receipt Date: 20041229
  Transmission Date: 20060218
  Serious: Yes (Other)
  Sender: FDA-Public Use
  Company Number: USA-2002-0003361

PATIENT
  Age: 63 Year
  Sex: Male
  Weight: 114.7 kg

DRUGS (13)
  1. OXYCONTIN [Suspect]
     Indication: PAIN
     Dosage: 40 MG, TID, ORAL
     Route: 048
     Dates: start: 19990101, end: 20010601
  2. OXYCODONE HCL [Suspect]
     Dosage: 5 MG
     Dates: start: 20001010
  3. ALPRAZOLAM [Concomitant]
  4. HYDROCORTISONE ACETATE [Concomitant]
  5. NITROGLYCERIN [Concomitant]
  6. LASIX [Concomitant]
  7. POTASSIUM CHLORIDE [Concomitant]
  8. ALLOPURINOL [Concomitant]
  9. PHENERGAN ^SPECIA^ [Concomitant]
  10. PERCOCET 10 [Concomitant]
  11. VALIUM [Concomitant]
  12. VIOXX [Concomitant]
  13. ROXICODONE [Concomitant]

REACTIONS (30)
  - ANXIETY [None]
  - ARTHRALGIA [None]
  - COGNITIVE DISORDER [None]
  - CONSTIPATION [None]
  - DEPRESSION [None]
  - DIARRHOEA [None]
  - DIFFICULTY IN WALKING [None]
  - DRUG ABUSER [None]
  - DRUG DEPENDENCE [None]
  - DRUG WITHDRAWAL SYNDROME [None]
  - DRY SKIN [None]
  - FALL [None]
  - FATIGUE [None]
  - GAIT DISTURBANCE [None]
  - GOUT [None]
  - HEADACHE [None]
  - HYPERCHOLESTEROLAEMIA [None]
  - HYPERHIDROSIS [None]
  - HYPOAESTHESIA [None]
  - INADEQUATE ANALGESIA [None]
  - INSOMNIA [None]
  - IRRITABILITY [None]
  - MEMORY IMPAIRMENT [None]
  - MUSCULOSKELETAL STIFFNESS [None]
  - NAUSEA [None]
  - NERVOUSNESS [None]
  - OBESITY [None]
  - TOOTH DISORDER [None]
  - TREMOR [None]
  - VOMITING [None]
